FAERS Safety Report 14584913 (Version 1)
Quarter: 2018Q1

REPORT INFORMATION
  Report Type: Spontaneous
  Country: US (occurrence: IR)
  Receive Date: 20180301
  Receipt Date: 20180301
  Transmission Date: 20180509
  Serious: Yes (Hospitalization, Other)
  Sender: FDA-Public Use
  Company Number: IR-UNICHEM PHARMACEUTICALS (USA) INC-UCM201802-000052

PATIENT
  Age: 48 Year
  Sex: Female

DRUGS (9)
  1. PHENOBARBITAL. [Concomitant]
     Active Substance: PHENOBARBITAL
  2. PROPOFOL. [Concomitant]
     Active Substance: PROPOFOL
  3. LAMOTRIGINE. [Suspect]
     Active Substance: LAMOTRIGINE
  4. CALCIUM CHLORIDE. [Concomitant]
     Active Substance: CALCIUM CHLORIDE
  5. AMIODARONE [Concomitant]
     Active Substance: AMIODARONE
  6. VECURONIUM [Concomitant]
     Active Substance: VECURONIUM BROMIDE
  7. FOSPHENYTOIN [Concomitant]
     Active Substance: FOSPHENYTOIN\FOSPHENYTOIN SODIUM
  8. LAMOTRIGINE. [Suspect]
     Active Substance: LAMOTRIGINE
  9. ROCURONIUM [Concomitant]
     Active Substance: ROCURONIUM BROMIDE

REACTIONS (9)
  - Overdose [Unknown]
  - Clonus [Unknown]
  - Status epilepticus [Recovered/Resolved]
  - Cardiac arrest [Recovered/Resolved]
  - Tachycardia [Unknown]
  - Sinus tachycardia [Recovered/Resolved]
  - Hyperreflexia [Unknown]
  - Coma scale abnormal [Unknown]
  - Circulatory collapse [Recovered/Resolved]
